FAERS Safety Report 18735466 (Version 1)
Quarter: 2021Q1

REPORT INFORMATION
  Report Type: Spontaneous
  Country: SE (occurrence: SE)
  Receive Date: 20210113
  Receipt Date: 20210113
  Transmission Date: 20210419
  Serious: Yes (Hospitalization)
  Sender: FDA-Public Use
  Company Number: SE-TEVA-2021-SE-1867944

PATIENT
  Age: 74 Year
  Sex: Female

DRUGS (2)
  1. METALYSE [Interacting]
     Active Substance: TENECTEPLASE
     Indication: CEREBROVASCULAR ACCIDENT
     Route: 065
     Dates: start: 20201202, end: 20201202
  2. RAMIPRIL. [Suspect]
     Active Substance: RAMIPRIL
     Dosage: DOSAGE ^X 2^?STRENGTH 1.25
     Route: 048
     Dates: start: 20191104, end: 20201202

REACTIONS (2)
  - Angioedema [Recovered/Resolved]
  - Drug interaction [Recovered/Resolved]

NARRATIVE: CASE EVENT DATE: 20201202
